FAERS Safety Report 16843356 (Version 2)
Quarter: 2019Q4

REPORT INFORMATION
  Report Type: Report from Study
  Country: US (occurrence: US)
  Receive Date: 20190924
  Receipt Date: 20191030
  Transmission Date: 20200122
  Serious: Yes (Death, Other)
  Sender: FDA-Public Use
  Company Number: PHEH2019US039180

PATIENT
  Age: 77 Year
  Sex: Male
  Weight: 81 kg

DRUGS (1)
  1. ENTRESTO [Suspect]
     Active Substance: SACUBITRIL\VALSARTAN
     Indication: PRODUCT USED FOR UNKNOWN INDICATION
     Route: 065

REACTIONS (3)
  - Hepatic failure [Fatal]
  - Aortic thrombosis [Fatal]
  - Intestinal ischaemia [Fatal]

NARRATIVE: CASE EVENT DATE: 20190607
